FAERS Safety Report 6212720-7 (Version None)
Quarter: 2009Q2

REPORT INFORMATION
  Report Type: 
  Country: None (occurrence: None)
  Receive Date: 20090601
  Receipt Date: 20090601
  Transmission Date: 20091009
  Serious: No
  Sender: FDA-Public Use
  Company Number: None

PATIENT
  Sex: Male
  Weight: 94.8018 kg

DRUGS (1)
  1. LAMICTAL [Suspect]
     Indication: INTERMITTENT EXPLOSIVE DISORDER
     Dosage: 200 MG TWICE DAILY ORAL
     Route: 048
     Dates: start: 20060608

REACTIONS (7)
  - ANXIETY [None]
  - APATHY [None]
  - BIPOLAR DISORDER [None]
  - CONDITION AGGRAVATED [None]
  - DEPRESSION [None]
  - INSOMNIA [None]
  - PRODUCT SUBSTITUTION ISSUE [None]
